FAERS Safety Report 18174042 (Version 2)
Quarter: 2020Q3

REPORT INFORMATION
  Report Type: Report from Study
  Country: CN (occurrence: CN)
  Receive Date: 20200820
  Receipt Date: 20200824
  Transmission Date: 20201103
  Serious: Yes (Other)
  Sender: FDA-Public Use
  Company Number: CN-PFIZER INC-2020320053

PATIENT
  Age: 53 Year
  Sex: Male

DRUGS (2)
  1. VORICONAZOLE. [Suspect]
     Active Substance: VORICONAZOLE
     Indication: HEPATIC CIRRHOSIS
     Dosage: 200 MG, 2X/DAY (LOADED )
  2. VORICONAZOLE. [Suspect]
     Active Substance: VORICONAZOLE
     Dosage: 100 MG, 2X/DAY (MAINTENANCE)

REACTIONS (1)
  - Altered state of consciousness [Unknown]
